FAERS Safety Report 9753144 (Version 3)
Quarter: 2015Q3

REPORT INFORMATION
  Report Type: Spontaneous
  Country: US (occurrence: US)
  Receive Date: 20131213
  Receipt Date: 20150805
  Transmission Date: 20151125
  Serious: No
  Sender: FDA-Public Use
  Company Number: US-GILEAD-2010-0026391

PATIENT
  Age: 81 Year
  Sex: Female
  Weight: 54.2 kg

DRUGS (15)
  1. MULTIVITAMIN [Concomitant]
     Active Substance: VITAMINS
  2. PREDNISONE. [Concomitant]
     Active Substance: PREDNISONE
  3. NB3 [Concomitant]
  4. ENALAPRIL [Concomitant]
     Active Substance: ENALAPRIL
  5. HYDROXYCHLOROQUINE [Concomitant]
     Active Substance: HYDROXYCHLOROQUINE
  6. LORAZEPAM. [Concomitant]
     Active Substance: LORAZEPAM
  7. COENZYME Q10 [Concomitant]
     Active Substance: UBIDECARENONE
  8. CALCIUM [Concomitant]
     Active Substance: CALCIUM
  9. HCTZ [Concomitant]
     Active Substance: HYDROCHLOROTHIAZIDE
  10. PHOSPHATIDYL SERINE [Concomitant]
     Active Substance: PHOSPHATIDYL SERINE
  11. FISH OIL [Concomitant]
     Active Substance: FISH OIL
  12. KLONIPIN [Concomitant]
     Active Substance: CLONAZEPAM
  13. CLONAZEPAM. [Concomitant]
     Active Substance: CLONAZEPAM
  14. LETAIRIS [Suspect]
     Active Substance: AMBRISENTAN
     Indication: PULMONARY ARTERIAL HYPERTENSION
     Route: 048
     Dates: start: 20100106
  15. AMLODIPINE BESYLATE. [Concomitant]
     Active Substance: AMLODIPINE BESYLATE

REACTIONS (1)
  - Blood pressure decreased [Unknown]
